FAERS Safety Report 7532414-5 (Version None)
Quarter: 2011Q2

REPORT INFORMATION
  Report Type: 
  Country: None (occurrence: None)
  Receive Date: 20110607
  Receipt Date: 20110607
  Transmission Date: 20111010
  Serious: No
  Sender: FDA-Public Use
  Company Number: None

PATIENT
  Sex: Female

DRUGS (1)
  1. COPAXONE [Suspect]
     Dosage: 20 MG DAILY SUBCUTANEOUSLY
     Route: 058
     Dates: start: 20110401, end: 20110504

REACTIONS (2)
  - MALAISE [None]
  - HYPERTENSION [None]
